FAERS Safety Report 25154464 (Version 1)
Quarter: 2025Q2

REPORT INFORMATION
  Report Type: Spontaneous
  Country: US (occurrence: US)
  Receive Date: 20250403
  Receipt Date: 20250403
  Transmission Date: 20250716
  Serious: No
  Sender: ELI LILLY AND CO
  Company Number: US-ELI_LILLY_AND_COMPANY-US202504000252

PATIENT
  Age: 48 Year
  Sex: Female

DRUGS (34)
  1. ZEPBOUND [Suspect]
     Active Substance: TIRZEPATIDE
     Indication: Weight control
     Route: 058
  2. ZEPBOUND [Suspect]
     Active Substance: TIRZEPATIDE
     Indication: Weight control
     Route: 058
  3. ZEPBOUND [Suspect]
     Active Substance: TIRZEPATIDE
     Indication: Weight control
     Route: 058
  4. ZEPBOUND [Suspect]
     Active Substance: TIRZEPATIDE
     Indication: Weight control
     Route: 058
  5. ZEPBOUND [Suspect]
     Active Substance: TIRZEPATIDE
     Indication: Inflammation
  6. ZEPBOUND [Suspect]
     Active Substance: TIRZEPATIDE
     Indication: Inflammation
  7. ZEPBOUND [Suspect]
     Active Substance: TIRZEPATIDE
     Indication: Inflammation
  8. ZEPBOUND [Suspect]
     Active Substance: TIRZEPATIDE
     Indication: Inflammation
  9. ZEPBOUND [Suspect]
     Active Substance: TIRZEPATIDE
     Indication: Weight control
     Route: 058
  10. ZEPBOUND [Suspect]
     Active Substance: TIRZEPATIDE
     Indication: Weight control
     Route: 058
  11. ZEPBOUND [Suspect]
     Active Substance: TIRZEPATIDE
     Indication: Weight control
     Route: 058
  12. ZEPBOUND [Suspect]
     Active Substance: TIRZEPATIDE
     Indication: Weight control
     Route: 058
  13. ZEPBOUND [Suspect]
     Active Substance: TIRZEPATIDE
     Indication: Inflammation
  14. ZEPBOUND [Suspect]
     Active Substance: TIRZEPATIDE
     Indication: Inflammation
  15. ZEPBOUND [Suspect]
     Active Substance: TIRZEPATIDE
     Indication: Inflammation
  16. ZEPBOUND [Suspect]
     Active Substance: TIRZEPATIDE
     Indication: Inflammation
  17. ZEPBOUND [Suspect]
     Active Substance: TIRZEPATIDE
     Indication: Weight control
     Route: 058
  18. ZEPBOUND [Suspect]
     Active Substance: TIRZEPATIDE
     Indication: Weight control
     Route: 058
  19. ZEPBOUND [Suspect]
     Active Substance: TIRZEPATIDE
     Indication: Weight control
     Route: 058
  20. ZEPBOUND [Suspect]
     Active Substance: TIRZEPATIDE
     Indication: Weight control
     Route: 058
  21. ZEPBOUND [Suspect]
     Active Substance: TIRZEPATIDE
     Indication: Inflammation
  22. ZEPBOUND [Suspect]
     Active Substance: TIRZEPATIDE
     Indication: Inflammation
  23. ZEPBOUND [Suspect]
     Active Substance: TIRZEPATIDE
     Indication: Inflammation
  24. ZEPBOUND [Suspect]
     Active Substance: TIRZEPATIDE
     Indication: Inflammation
  25. ZEPBOUND [Suspect]
     Active Substance: TIRZEPATIDE
     Indication: Weight control
     Route: 058
  26. ZEPBOUND [Suspect]
     Active Substance: TIRZEPATIDE
     Indication: Weight control
     Route: 058
  27. ZEPBOUND [Suspect]
     Active Substance: TIRZEPATIDE
     Indication: Weight control
     Route: 058
  28. ZEPBOUND [Suspect]
     Active Substance: TIRZEPATIDE
     Indication: Weight control
     Route: 058
  29. ZEPBOUND [Suspect]
     Active Substance: TIRZEPATIDE
     Indication: Inflammation
  30. ZEPBOUND [Suspect]
     Active Substance: TIRZEPATIDE
     Indication: Inflammation
  31. ZEPBOUND [Suspect]
     Active Substance: TIRZEPATIDE
     Indication: Inflammation
  32. ZEPBOUND [Suspect]
     Active Substance: TIRZEPATIDE
     Indication: Inflammation
  33. VITAMIN D NOS [Concomitant]
     Active Substance: CHOLECALCIFEROL\ERGOCALCIFEROL
     Indication: Product used for unknown indication
  34. FENOFIBRATE [Concomitant]
     Active Substance: FENOFIBRATE
     Indication: Blood triglycerides

REACTIONS (3)
  - Vision blurred [Unknown]
  - Product dose omission issue [Unknown]
  - Injection site reaction [Unknown]
